FAERS Safety Report 5827252-5 (Version None)
Quarter: 2008Q3

REPORT INFORMATION
  Report Type: 
  Country: None (occurrence: None)
  Receive Date: 20080730
  Receipt Date: 20080723
  Transmission Date: 20090109
  Serious: Yes (Hospitalization)
  Sender: FDA-Public Use
  Company Number: CN-ROCHE-577366

PATIENT
  Sex: Male
  Weight: 60 kg

DRUGS (1)
  1. PEGASYS [Suspect]
     Dosage: THE DOSAGE WAS 180MCG PER WEEK.
     Route: 058
     Dates: start: 20071201, end: 20080620

REACTIONS (4)
  - AGGRESSION [None]
  - MANIA [None]
  - SELF INJURIOUS BEHAVIOUR [None]
  - SPEECH DISORDER [None]
